FAERS Safety Report 6590855-7 (Version None)
Quarter: 2010Q1

REPORT INFORMATION
  Report Type: 
  Country: None (occurrence: None)
  Receive Date: 20100219
  Receipt Date: 20100215
  Transmission Date: 20100710
  Serious: Yes (Disabling)
  Sender: FDA-Public Use
  Company Number: US-MERCK-1002USA00999

PATIENT
  Age: 53 Year
  Sex: Female

DRUGS (1)
  1. FOSAMAX [Suspect]
     Indication: BONE DENSITY DECREASED
     Route: 048
     Dates: start: 20070101

REACTIONS (2)
  - MOVEMENT DISORDER [None]
  - MUSCULOSKELETAL PAIN [None]
